FAERS Safety Report 7669980-5 (Version None)
Quarter: 2011Q3

REPORT INFORMATION
  Report Type: 
  Country: None (occurrence: None)
  Receive Date: 20110808
  Receipt Date: 20110729
  Transmission Date: 20111222
  Serious: Yes (Hospitalization)
  Sender: FDA-Public Use
  Company Number: PHHY2011CH69983

PATIENT
  Age: 64 Year
  Sex: Female

DRUGS (13)
  1. PANTOPRAZOLE [Concomitant]
     Indication: GASTROOESOPHAGEAL REFLUX DISEASE
     Dosage: UNK
  2. LORAZEPAM [Suspect]
     Dosage: 3 MG, UNK
  3. METOPROLOL TARTRATE [Concomitant]
     Indication: HYPERTENSION
     Dosage: UNK
  4. DIAZEPAM [Suspect]
     Dosage: 15 MG, UNK
  5. DYDROGESTERONE TAB [Concomitant]
     Indication: MENOPAUSE
     Dosage: 5 MG, UNK
  6. FELODIPINE [Concomitant]
     Indication: HYPERTENSION
     Dosage: UNK
  7. LORAZEPAM [Suspect]
     Dosage: 4 MG, UNK
  8. ESTRADIOL [Concomitant]
     Indication: HORMONE REPLACEMENT THERAPY
     Dosage: UNK
  9. LISINOPRIL [Concomitant]
     Indication: HYPERTENSION
     Dosage: UNK
  10. LEVOTHYROXINE SODIUM [Concomitant]
     Indication: HYPOTHYROIDISM
     Dosage: UNK
  11. SALICYLATE SODIUM [Concomitant]
     Indication: CARDIAC DISORDER
     Dosage: UNK
  12. LORAZEPAM [Suspect]
     Dosage: UNK
  13. ATORVASTATIN [Concomitant]
     Indication: HYPERLIPIDAEMIA
     Dosage: UNK

REACTIONS (13)
  - CONSCIOUSNESS FLUCTUATING [None]
  - PSYCHOMOTOR HYPERACTIVITY [None]
  - DISTURBANCE IN ATTENTION [None]
  - DISORIENTATION [None]
  - SPEECH DISORDER [None]
  - THINKING ABNORMAL [None]
  - IRRITABILITY [None]
  - AGITATION [None]
  - DELIRIUM [None]
  - ANXIETY [None]
  - DISSOCIATIVE DISORDER [None]
  - MEMORY IMPAIRMENT [None]
  - DRUG WITHDRAWAL SYNDROME [None]
